FAERS Safety Report 18129701 (Version 1)
Quarter: 2020Q3

REPORT INFORMATION
  Report Type: Spontaneous
  Country: US (occurrence: US)
  Receive Date: 20200810
  Receipt Date: 20200810
  Transmission Date: 20201103
  Serious: No
  Sender: FDA-Public Use
  Company Number: US-PERRIGO-19US012070

PATIENT
  Age: 82 Year
  Sex: Female
  Weight: 77.55 kg

DRUGS (3)
  1. LORATADINE. [Suspect]
     Active Substance: LORATADINE
     Indication: SEASONAL ALLERGY
     Dosage: 10 MG, PRN
     Route: 048
     Dates: start: 2018, end: 20190915
  2. LOSARTAN POTASSIUM. [Concomitant]
     Active Substance: LOSARTAN POTASSIUM
     Indication: HYPERTENSION
  3. LORATADINE. [Suspect]
     Active Substance: LORATADINE
     Dosage: 1/2 TABLET, PRN
     Route: 048
     Dates: start: 20190916, end: 20191005

REACTIONS (4)
  - Wrong technique in product usage process [Recovered/Resolved]
  - Underdose [Recovered/Resolved]
  - Dyspnoea at rest [Not Recovered/Not Resolved]
  - Expired product administered [Recovered/Resolved]

NARRATIVE: CASE EVENT DATE: 2018
